FAERS Safety Report 5700787-1 (Version None)
Quarter: 2008Q2

REPORT INFORMATION
  Report Type: 
  Country: None (occurrence: None)
  Receive Date: 20080409
  Receipt Date: 20080409
  Transmission Date: 20081010
  Serious: Yes (Other)
  Sender: FDA-Public Use
  Company Number: None

PATIENT
  Age: 56 Year
  Sex: Male
  Weight: 95.2554 kg

DRUGS (1)
  1. VYTORIN [Suspect]
     Indication: BLOOD CHOLESTEROL INCREASED
     Dosage: HALF DAILY PO
     Route: 048
     Dates: start: 20071201, end: 20080402

REACTIONS (3)
  - MUSCLE TIGHTNESS [None]
  - MYALGIA [None]
  - ROTATOR CUFF SYNDROME [None]
